FAERS Safety Report 10089803 (Version 2)
Quarter: 2014Q2

REPORT INFORMATION
  Report Type: Spontaneous
  Country: JP (occurrence: JP)
  Receive Date: 20140421
  Receipt Date: 20140618
  Transmission Date: 20141212
  Serious: Yes (Death)
  Sender: FDA-Public Use
  Company Number: JP-SA-2014SA050756

PATIENT
  Age: 50 Year
  Sex: Male
  Weight: 68.5 kg

DRUGS (17)
  1. LITHIUM CARBONATE [Suspect]
     Indication: DEPRESSION
     Route: 065
  2. LITHIUM CARBONATE [Interacting]
     Indication: SUICIDE ATTEMPT
     Route: 065
  3. SODIUM VALPROATE [Suspect]
     Indication: DEPRESSION
     Route: 065
  4. SODIUM VALPROATE [Suspect]
     Indication: SUICIDE ATTEMPT
     Route: 065
  5. ZOPICLONE [Suspect]
     Indication: DEPRESSION
     Route: 065
  6. ZOPICLONE [Suspect]
     Indication: SUICIDE ATTEMPT
     Route: 065
  7. DIAZEPAM [Suspect]
     Indication: DEPRESSION
     Route: 065
  8. DIAZEPAM [Suspect]
     Indication: SUICIDE ATTEMPT
     Route: 065
  9. ZOLPIDEM [Suspect]
     Indication: DEPRESSION
     Route: 065
  10. ZOLPIDEM [Suspect]
     Indication: SUICIDE ATTEMPT
     Route: 065
  11. CHLORPROMAZINE [Suspect]
     Indication: SUICIDE ATTEMPT
     Route: 065
  12. BROTIZOLAM [Suspect]
     Indication: DEPRESSION
     Route: 065
  13. BROTIZOLAM [Suspect]
     Indication: SUICIDE ATTEMPT
     Route: 065
  14. FLUVOXAMINE MALEATE [Interacting]
     Indication: DEPRESSION
     Route: 065
  15. FLUVOXAMINE MALEATE [Interacting]
     Indication: SUICIDE ATTEMPT
     Route: 065
  16. FLUNITRAZEPAM [Suspect]
     Indication: DEPRESSION
     Route: 065
  17. FLUNITRAZEPAM [Suspect]
     Indication: SUICIDE ATTEMPT
     Route: 065

REACTIONS (6)
  - Serum serotonin increased [Fatal]
  - Drug interaction [Fatal]
  - Cardio-respiratory arrest [Fatal]
  - Overdose [Fatal]
  - Completed suicide [Fatal]
  - Off label use [Unknown]
